FAERS Safety Report 5619831-5 (Version None)
Quarter: 2008Q1

REPORT INFORMATION
  Report Type: 
  Country: None (occurrence: None)
  Receive Date: 20080208
  Receipt Date: 20080206
  Transmission Date: 20080703
  Serious: Yes (Death, Hospitalization, Other)
  Sender: FDA-Public Use
  Company Number: PHHO2006CA15732

PATIENT
  Age: 64 Year
  Sex: Male
  Weight: 49 kg

DRUGS (5)
  1. HYDROXYUREA [Suspect]
     Indication: GLIOBLASTOMA MULTIFORME
     Dosage: 500 MG, BID
     Route: 048
     Dates: start: 20060825, end: 20060910
  2. GLEEVEC [Suspect]
     Indication: GLIOBLASTOMA MULTIFORME
     Dosage: 500 MG, BID
     Route: 048
     Dates: start: 20060825, end: 20060910
  3. DECADRON [Suspect]
     Indication: BRAIN OEDEMA
  4. DILANTIN [Suspect]
     Dates: end: 20060915
  5. CLOBAZAM [Suspect]

REACTIONS (20)
  - ABASIA [None]
  - AGITATION [None]
  - ANAEMIA [None]
  - ANXIETY [None]
  - ASTHENIA [None]
  - BLOOD PRESSURE DECREASED [None]
  - CONFUSIONAL STATE [None]
  - DELUSION [None]
  - DRUG TOXICITY [None]
  - DYSPNOEA [None]
  - GENERAL PHYSICAL HEALTH DETERIORATION [None]
  - INSOMNIA [None]
  - LEUKOPENIA [None]
  - MEMORY IMPAIRMENT [None]
  - NEUTROPENIA [None]
  - PNEUMONIA ASPIRATION [None]
  - RESPIRATORY ARREST [None]
  - SEPTIC SHOCK [None]
  - SOMNOLENCE [None]
  - THROMBOCYTOPENIA [None]
